FAERS Safety Report 7356229-6 (Version None)
Quarter: 2011Q1

REPORT INFORMATION
  Report Type: 
  Country: None (occurrence: None)
  Receive Date: 20110316
  Receipt Date: 20100921
  Transmission Date: 20110831
  Serious: Yes (Hospitalization)
  Sender: FDA-Public Use
  Company Number: US-BAYER-201018622NA

PATIENT
  Sex: Female
  Weight: 77.098 kg

DRUGS (10)
  1. BENZONATATE [Concomitant]
     Indication: COUGH
  2. UNCODEABLE ^UNCLASSIFIABLE^ [Concomitant]
  3. LORATADINE [Concomitant]
     Indication: HYPERSENSITIVITY
  4. CHOLESTEROL [Concomitant]
  5. UNCODEABLE ^UNCLASSIFIABLE^ [Concomitant]
  6. VERAPAMIL [Concomitant]
     Indication: HYPERTENSION
  7. UNCODEABLE ^UNCLASSIFIABLE^ [Concomitant]
     Dosage: 400 MG, UNK
  8. FERROUS SULFATE TAB [Concomitant]
     Dosage: 325 MG, UNK
  9. YASMIN [Suspect]
     Indication: MENSTRUAL CYCLE MANAGEMENT
     Dosage: UNK
     Route: 048
     Dates: start: 20070801, end: 20080205
  10. FAMOTIDINE [Concomitant]

REACTIONS (3)
  - PAIN [None]
  - CEREBRAL INFARCTION [None]
  - MOTOR DYSFUNCTION [None]
